FAERS Safety Report 14679089 (Version 1)
Quarter: 2018Q1

REPORT INFORMATION
  Report Type: Spontaneous
  Country: AU (occurrence: AU)
  Receive Date: 20180326
  Receipt Date: 20180326
  Transmission Date: 20180509
  Serious: Yes (Other)
  Sender: FDA-Public Use
  Company Number: AU-009507513-1803AUS008276

PATIENT
  Age: 50 Year
  Sex: Female

DRUGS (2)
  1. ERTAPENEM SODIUM [Suspect]
     Active Substance: ERTAPENEM SODIUM
     Dosage: 1 GRAM
     Dates: end: 20170614
  2. MEROPENEM. [Suspect]
     Active Substance: MEROPENEM
     Dosage: 3 INTERNATIONAL UNIT, DAILY
     Dates: start: 20170522, end: 20170607

REACTIONS (1)
  - Neutropenia [Unknown]

NARRATIVE: CASE EVENT DATE: 20170603
